FAERS Safety Report 12521044 (Version 1)
Quarter: 2016Q3

REPORT INFORMATION
  Report Type: Spontaneous
  Country: AU (occurrence: AU)
  Receive Date: 20160701
  Receipt Date: 20160701
  Transmission Date: 20161109
  Serious: Yes (Disabling)
  Sender: FDA-Public Use
  Company Number: AU-009507513-1606AUS012168

PATIENT
  Age: 20 Year
  Sex: Male

DRUGS (1)
  1. RALTEGRAVIR POTASSIUM [Suspect]
     Active Substance: RALTEGRAVIR POTASSIUM
     Dosage: 400 MG, 2 TIMES
     Route: 048
     Dates: start: 20150305, end: 20160302

REACTIONS (2)
  - Blood creatine increased [Unknown]
  - Presyncope [Unknown]

NARRATIVE: CASE EVENT DATE: 20160302
